FAERS Safety Report 8932573 (Version 1)
Quarter: 2012Q4

REPORT INFORMATION
  Report Type: 
  Country: CA (occurrence: CA)
  Receive Date: 20121129
  Receipt Date: 20121129
  Transmission Date: 20130627
  Serious: Yes (Other)
  Sender: FDA-Public Use
  Company Number: PHHY2012CA109392

PATIENT
  Sex: Female

DRUGS (4)
  1. ACLASTA [Suspect]
     Indication: OSTEOPOROSIS
     Dosage: UNK
     Route: 042
     Dates: start: 20091002
  2. ACLASTA [Suspect]
     Dosage: UNK
     Route: 042
     Dates: start: 20101029
  3. ACLASTA [Suspect]
     Dosage: UNK
     Route: 042
     Dates: start: 20111111
  4. ACLASTA [Suspect]
     Dosage: UNK
     Route: 042
     Dates: start: 20121116

REACTIONS (2)
  - Fall [Unknown]
  - Foot fracture [Unknown]
